FAERS Safety Report 19763714 (Version 2)
Quarter: 2021Q4

REPORT INFORMATION
  Report Type: Spontaneous
  Country: FR (occurrence: FR)
  Receive Date: 20210830
  Receipt Date: 20211202
  Transmission Date: 20220303
  Serious: Yes (Other)
  Sender: FDA-Public Use
  Company Number: FR-SA-2021SA082685

PATIENT
  Age: 15 Year
  Sex: Female

DRUGS (1)
  1. PREGABALIN [Suspect]
     Active Substance: PREGABALIN
     Indication: Product used for unknown indication
     Dosage: 1200 MILLIGRAM, TOTAL (1200 MG, ONCE/SINGLE)
     Route: 065

REACTIONS (5)
  - Seizure [Unknown]
  - Drug abuse [Unknown]
  - Product use issue [Unknown]
  - Off label use [Unknown]
  - Overdose [Unknown]
